FAERS Safety Report 16068184 (Version 1)
Quarter: 2019Q1

REPORT INFORMATION
  Report Type: Spontaneous
  Country: FR (occurrence: FR)
  Receive Date: 20190313
  Receipt Date: 20190313
  Transmission Date: 20190418
  Serious: Yes (Disabling)
  Sender: FDA-Public Use
  Company Number: FR-PFIZER INC-2019107472

PATIENT
  Age: 69 Year
  Sex: Male
  Weight: 55 kg

DRUGS (6)
  1. OFLOCET /00731801/ [Suspect]
     Active Substance: OFLOXACIN
     Indication: ARTHRITIS BACTERIAL
     Dosage: 400 MILLIGRAM, QD
     Route: 048
     Dates: start: 20181031, end: 20181218
  2. RIFADINE /00146902/ [Suspect]
     Active Substance: RIFAMPIN SODIUM
     Indication: ARTHRITIS BACTERIAL
     Dosage: 900 MILLIGRAM, QD
     Route: 048
     Dates: start: 20181006, end: 20181018
  3. DOLIPRANE [Concomitant]
     Active Substance: ACETAMINOPHEN
     Dosage: 1 GRAM
     Route: 048
  4. TRAMADOL /00599202/ [Concomitant]
     Active Substance: TRAMADOL
     Dosage: 50 MILLIGRAM
     Route: 048
  5. PANTOPRAZOLE [Suspect]
     Active Substance: PANTOPRAZOLE
     Dosage: 40 MILLIGRAM, QD
     Route: 048
     Dates: start: 20181006
  6. ACIDE FOLIQUE [Concomitant]
     Active Substance: FOLIC ACID
     Dosage: 10 MILLIGRAM, QD
     Route: 048

REACTIONS (1)
  - Axonal neuropathy [Not Recovered/Not Resolved]

NARRATIVE: CASE EVENT DATE: 201811
